FAERS Safety Report 15116744 (Version 1)
Quarter: 2018Q3

REPORT INFORMATION
  Report Type: Spontaneous
  Country: US (occurrence: US)
  Receive Date: 20180612
  Receipt Date: 20180612
  Transmission Date: 20181010
  Serious: Yes (Other)
  Sender: FDA-Public Use
  Company Number: None

PATIENT
  Age: 48 Year
  Sex: Male
  Weight: 112.5 kg

DRUGS (1)
  1. ORITAVANCIN. [Suspect]
     Active Substance: ORITAVANCIN
     Indication: CELLULITIS
     Route: 041
     Dates: start: 20180608, end: 20180608

REACTIONS (4)
  - Skin discolouration [None]
  - Tremor [None]
  - Infusion related reaction [None]
  - Livedo reticularis [None]

NARRATIVE: CASE EVENT DATE: 20180608
